FAERS Safety Report 25018246 (Version 2)
Quarter: 2025Q2

REPORT INFORMATION
  Report Type: Spontaneous
  Country: BE (occurrence: BE)
  Receive Date: 20250227
  Receipt Date: 20250410
  Transmission Date: 20250716
  Serious: No
  Sender: TOLMAR
  Company Number: BE-RECGATEWAY-2025000804

PATIENT
  Age: 56 Year
  Sex: Male

DRUGS (2)
  1. ELIGARD [Suspect]
     Active Substance: LEUPROLIDE ACETATE
     Indication: Product used for unknown indication
  2. ELIGARD [Suspect]
     Active Substance: LEUPROLIDE ACETATE
     Indication: Product used for unknown indication

REACTIONS (2)
  - Product administration error [Unknown]
  - Device leakage [Unknown]
